FAERS Safety Report 9109153 (Version 1)
Quarter: 2013Q1

REPORT INFORMATION
  Report Type: Spontaneous
  Country: RU (occurrence: RU)
  Receive Date: 20130222
  Receipt Date: 20130222
  Transmission Date: 20140127
  Serious: Yes (Hospitalization)
  Sender: FDA-Public Use
  Company Number: RU-VIIV HEALTHCARE LIMITED-B0869320A

PATIENT
  Age: 49 Year
  Sex: Male

DRUGS (1)
  1. COMBIVIR [Suspect]
     Indication: PRODUCT USED FOR UNKNOWN INDICATION
     Route: 048

REACTIONS (5)
  - Leukopenia [Unknown]
  - Erythropenia [Unknown]
  - Dyspnoea [Unknown]
  - Dizziness [Unknown]
  - Pain in extremity [Unknown]
